FAERS Safety Report 9680845 (Version 1)
Quarter: 2013Q4

REPORT INFORMATION
  Report Type: Report from Study
  Country: US (occurrence: US)
  Receive Date: 20131111
  Receipt Date: 20131111
  Transmission Date: 20140711
  Serious: Yes (Other)
  Sender: FDA-Public Use
  Company Number: PHEH2013US023402

PATIENT
  Sex: Female

DRUGS (2)
  1. TOBI [Suspect]
     Indication: PSEUDOMONAS INFECTION
     Dosage: 112 MG, BID
  2. TOBI [Suspect]
     Indication: CYSTIC FIBROSIS

REACTIONS (1)
  - Drug hypersensitivity [Unknown]
